FAERS Safety Report 25908306 (Version 1)
Quarter: 2025Q4

REPORT INFORMATION
  Report Type: Spontaneous
  Country: US (occurrence: US)
  Receive Date: 20251010
  Receipt Date: 20251010
  Transmission Date: 20260118
  Serious: No
  Sender: SPROUT PHARMACEUTICALS
  Company Number: US-Sprout Pharmaceuticals, Inc.-2024SP000351

PATIENT

DRUGS (3)
  1. ADDYI [Suspect]
     Active Substance: FLIBANSERIN
     Indication: Libido decreased
     Dosage: RX# 4796376, 100 MILLIGRAM
     Route: 048
     Dates: start: 20240907, end: 20241024
  2. Adderall extended relief [Concomitant]
     Indication: Product used for unknown indication
     Dosage: UNK UNK
  3. SUBUTEX [Concomitant]
     Active Substance: BUPRENORPHINE HYDROCHLORIDE
     Indication: Product used for unknown indication
     Dosage: UNK UNK

REACTIONS (4)
  - Malaise [Unknown]
  - Crying [Unknown]
  - Psychotic behaviour [Unknown]
  - Emotional disorder [Unknown]

NARRATIVE: CASE EVENT DATE: 20240921
